FAERS Safety Report 8359565-X (Version None)
Quarter: 2012Q2

REPORT INFORMATION
  Report Type: 
  Country: None (occurrence: None)
  Receive Date: 20120515
  Receipt Date: 20120509
  Transmission Date: 20120825
  Serious: No
  Sender: FDA-Public Use
  Company Number: US-ELI_LILLY_AND_COMPANY-US201204004424

PATIENT
  Sex: Male

DRUGS (3)
  1. HUMALOG [Suspect]
     Dosage: 10 U, OTHER
  2. HUMALOG [Suspect]
     Dosage: 16 U, EACH EVENING
  3. HUMALOG [Suspect]
     Indication: DIABETES MELLITUS
     Dosage: 16 U, EACH MORNING

REACTIONS (3)
  - MACULAR DEGENERATION [None]
  - INTRA-OCULAR INJECTION [None]
  - UNDERDOSE [None]
